FAERS Safety Report 10883131 (Version 1)
Quarter: 2015Q1

REPORT INFORMATION
  Report Type: Report from Study
  Country: DE (occurrence: DE)
  Receive Date: 20150303
  Receipt Date: 20150303
  Transmission Date: 20150721
  Serious: Yes (Death, Hospitalization)
  Sender: FDA-Public Use
  Company Number: DE-PFIZER INC-2015068794

PATIENT
  Age: 83 Year
  Sex: Male
  Weight: 77 kg

DRUGS (2)
  1. TORISEL [Suspect]
     Active Substance: TEMSIROLIMUS
     Dosage: 175 MG, CYCLIC (DAYS 1, 8, 15 REPEAT DAY 28)
     Dates: start: 20140911, end: 20141203
  2. TORISEL [Suspect]
     Active Substance: TEMSIROLIMUS
     Dosage: 75 MG, WEEKLY
     Dates: start: 20141210

REACTIONS (1)
  - Death [Fatal]

NARRATIVE: CASE EVENT DATE: 20150202
